FAERS Safety Report 5828092-3 (Version None)
Quarter: 2008Q3

REPORT INFORMATION
  Report Type: 
  Country: None (occurrence: None)
  Receive Date: 20080730
  Receipt Date: 20080206
  Transmission Date: 20090109
  Serious: Yes (Hospitalization)
  Sender: FDA-Public Use
  Company Number: A0707842A

PATIENT

DRUGS (2)
  1. ZANTAC [Suspect]
     Indication: DRUG USE FOR UNKNOWN INDICATION
     Dosage: 2.5ML THREE TIMES PER DAY
     Route: 048
     Dates: start: 20080101
  2. NO CONCURRENT MEDICATION [Concomitant]

REACTIONS (4)
  - DRUG ADMINISTRATION ERROR [None]
  - MEDICATION ERROR [None]
  - OVERDOSE [None]
  - VOMITING [None]
